FAERS Safety Report 5882688-1 (Version None)
Quarter: 2008Q3

REPORT INFORMATION
  Report Type: 
  Country: None (occurrence: None)
  Receive Date: 20080913
  Receipt Date: 20080812
  Transmission Date: 20090109
  Serious: No
  Sender: FDA-Public Use
  Company Number: US-ABBOTT-08P-163-0470468-00

PATIENT
  Sex: Male
  Weight: 49.94 kg

DRUGS (11)
  1. HUMIRA [Suspect]
     Indication: RHEUMATOID ARTHRITIS
     Route: 058
     Dates: start: 20060101
  2. ETODOLAC [Concomitant]
     Indication: INFLAMMATION
     Route: 048
     Dates: start: 20050101
  3. LISINOPRIL [Concomitant]
     Indication: BLOOD PRESSURE
     Dosage: 10 MG DAILY
     Route: 048
     Dates: start: 20060101
  4. TRAMADOL HCL [Concomitant]
     Indication: PAIN
     Route: 048
     Dates: start: 20080701
  5. ZOLPIDEM TARTRATE [Concomitant]
     Indication: INSOMNIA
     Dosage: 12.5 MG AT BED TIME
     Route: 048
     Dates: start: 20060101
  6. ACETYLSALICYLIC ACID SRT [Concomitant]
     Indication: CARDIAC DISORDER
     Dosage: 81 MG DAILY
     Route: 048
     Dates: start: 20030101
  7. INEGY [Concomitant]
     Indication: BLOOD CHOLESTEROL
     Dosage: 10/10 MG DAILY
     Route: 048
     Dates: start: 20050101
  8. DUTASTERIDE [Concomitant]
     Indication: PROSTATOMEGALY
     Dosage: 0.5 MG DAILY
     Route: 048
     Dates: start: 20080501
  9. M.V.I. [Concomitant]
     Indication: DRUG USE FOR UNKNOWN INDICATION
     Dosage: 1 TABLET DAILY
     Route: 048
  10. FEO-SOL [Concomitant]
     Indication: BLOOD IRON DECREASED
     Dosage: 45 MG DAILY
     Route: 048
     Dates: start: 20060101
  11. DULOXETINE HYDROCHLORIDE [Concomitant]
     Indication: PAIN IN EXTREMITY
     Dosage: 30 MG, 1-2 TIMES PER DAY
     Dates: start: 20030101

REACTIONS (4)
  - C-REACTIVE PROTEIN INCREASED [None]
  - DRUG INEFFECTIVE [None]
  - PAIN [None]
  - RED BLOOD CELL SEDIMENTATION RATE INCREASED [None]
